FAERS Safety Report 9818609 (Version 1)
Quarter: 2014Q1

REPORT INFORMATION
  Report Type: Spontaneous
  Country: BR (occurrence: BR)
  Receive Date: 20140115
  Receipt Date: 20140115
  Transmission Date: 20141002
  Serious: Yes (Other)
  Sender: FDA-Public Use
  Company Number: PHHY2014BR002983

PATIENT
  Age: 76 Year
  Sex: Female

DRUGS (1)
  1. ZOLEDRONIC ACID [Suspect]
     Indication: METASTASES TO BONE
     Dosage: 4 MG, ONCE A MONTH
     Route: 042
     Dates: start: 2003, end: 2009

REACTIONS (7)
  - Osteonecrosis of jaw [Recovering/Resolving]
  - Pain [Recovering/Resolving]
  - Dysgeusia [Recovering/Resolving]
  - Fistula discharge [Recovering/Resolving]
  - Impaired healing [Recovering/Resolving]
  - Exposed bone in jaw [Recovered/Resolved]
  - Bacterial disease carrier [Unknown]
